FAERS Safety Report 17028679 (Version 1)
Quarter: 2019Q4

REPORT INFORMATION
  Report Type: Spontaneous
  Country: DE (occurrence: DE)
  Receive Date: 20191113
  Receipt Date: 20191113
  Transmission Date: 20200122
  Serious: Yes (Other)
  Sender: FDA-Public Use
  Company Number: DE-ABBVIE-19K-062-2998549-00

PATIENT
  Age: 54 Year
  Sex: Female
  Weight: 75 kg

DRUGS (1)
  1. HUMIRA [Suspect]
     Active Substance: ADALIMUMAB
     Indication: PRODUCT USED FOR UNKNOWN INDICATION
     Dosage: 40MG/ 14T?GIG
     Route: 058
     Dates: start: 20130613, end: 20190821

REACTIONS (2)
  - Initial insomnia [Recovering/Resolving]
  - Leiomyoma [Recovered/Resolved]

NARRATIVE: CASE EVENT DATE: 20151015
